FAERS Safety Report 17111997 (Version 1)
Quarter: 2019Q4

REPORT INFORMATION
  Report Type: Spontaneous
  Country: US (occurrence: US)
  Receive Date: 20191203
  Receipt Date: 20191203
  Transmission Date: 20200122
  Serious: Yes (Hospitalization, Disabling)
  Sender: FDA-Public Use
  Company Number: None

PATIENT
  Age: 85 Year
  Sex: Male
  Weight: 66.2 kg

DRUGS (11)
  1. FUROSEMIDE 20MG DAILY [Concomitant]
  2. LISINOPRIL 5MG DAILY [Concomitant]
  3. SUCRALFATE 1G QID [Concomitant]
  4. CARVEDILOL 3.125MG BID [Concomitant]
  5. OMEPRAZOLE 20MG DAILY [Concomitant]
  6. DIGOXIN 0.125MG DAILY [Concomitant]
  7. DABIGATRAN [Suspect]
     Active Substance: DABIGATRAN
     Indication: ATRIAL FIBRILLATION
     Route: 048
     Dates: start: 20140318
  8. AMIODARONE 200MG DAILY [Concomitant]
  9. LEVOTHYROXINE 50MCG DAILY [Concomitant]
  10. FERROUS SULFATE 325MG BID [Concomitant]
  11. DILTIAZEM 240MG DAILY [Concomitant]

REACTIONS (4)
  - Dysphagia [None]
  - Hemiparesis [None]
  - Cerebral infarction [None]
  - Mental status changes [None]

NARRATIVE: CASE EVENT DATE: 20151118
